FAERS Safety Report 4659129-5 (Version None)
Quarter: 2005Q2

REPORT INFORMATION
  Report Type: 
  Country: None (occurrence: None)
  Receive Date: 20050509
  Receipt Date: 20050426
  Transmission Date: 20051028
  Serious: Yes (Other)
  Sender: FDA-Public Use
  Company Number: 2005067354

PATIENT
  Age: 70 Year
  Sex: Male

DRUGS (6)
  1. CABERGOLINE [Suspect]
     Indication: PARKINSON'S DISEASE
     Dosage: (3 MG), ORAL
     Route: 048
     Dates: start: 20030317, end: 20050401
  2. SINEMET [Concomitant]
  3. ATORVASTATIN CALCIUM [Concomitant]
  4. LEVOTHYROXINE SODIUM [Concomitant]
  5. LAMOTRIGINE [Concomitant]
  6. ZOPICLONE (ZOPLICONE) [Concomitant]

REACTIONS (3)
  - AORTIC VALVE INCOMPETENCE [None]
  - MITRAL VALVE INCOMPETENCE [None]
  - TRICUSPID VALVE INCOMPETENCE [None]
